FAERS Safety Report 13377669 (Version 1)
Quarter: 2017Q1

REPORT INFORMATION
  Report Type: Report from Study
  Country: KR (occurrence: KR)
  Receive Date: 20170328
  Receipt Date: 20170328
  Transmission Date: 20170429
  Serious: Yes (Hospitalization, Other)
  Sender: FDA-Public Use
  Company Number: KR-GILEAD-2017-0263500

PATIENT
  Age: 66 Year
  Sex: Female
  Weight: 49 kg

DRUGS (12)
  1. AMBRISENTAN [Suspect]
     Active Substance: AMBRISENTAN
     Dosage: 5 MG, 1D
     Route: 048
     Dates: start: 20160810
  2. SILDENAFIL. [Concomitant]
     Active Substance: SILDENAFIL
     Indication: PULMONARY ARTERIAL HYPERTENSION
     Dosage: 20 MG, 1D
     Route: 048
     Dates: start: 20150326, end: 20160820
  3. BERASIL [Concomitant]
     Active Substance: BERAPROST
     Indication: PULMONARY ARTERIAL HYPERTENSION
     Dosage: 60 MG, QID
     Route: 048
     Dates: start: 20150728, end: 20160711
  4. SILDENAFIL. [Concomitant]
     Active Substance: SILDENAFIL
     Dosage: 20 MG, TID
     Route: 048
     Dates: start: 20160326, end: 20160820
  5. SYNTHROID [Concomitant]
     Active Substance: LEVOTHYROXINE SODIUM
     Indication: HYPOTHYROIDISM
     Dosage: 0.05 MG, 1D
     Route: 048
     Dates: start: 20150327
  6. AMBRISENTAN [Suspect]
     Active Substance: AMBRISENTAN
     Dosage: 10 MG, 1D
     Route: 048
     Dates: start: 20150331, end: 20160809
  7. SYNTHROID [Concomitant]
     Active Substance: LEVOTHYROXINE SODIUM
     Dosage: 0.5 MG, 1D
     Dates: start: 20150327, end: 20170201
  8. SYNTHROID [Concomitant]
     Active Substance: LEVOTHYROXINE SODIUM
     Dosage: 0.1 MG, 1D
     Route: 048
     Dates: start: 20170202
  9. ASPIRIN PROTECT [Concomitant]
     Active Substance: ASPIRIN
     Indication: PERIPHERAL ARTERIAL OCCLUSIVE DISEASE
     Dosage: 100 MG, 1D
     Route: 048
     Dates: start: 20150722
  10. MEVALOTIN [Concomitant]
     Active Substance: PRAVASTATIN SODIUM
     Indication: DYSLIPIDAEMIA
     Dosage: 10 MG, 1D
     Route: 048
     Dates: start: 20150326, end: 20150417
  11. AMBRISENTAN [Suspect]
     Active Substance: AMBRISENTAN
     Indication: PULMONARY ARTERIAL HYPERTENSION
     Dosage: 5 MG, 1D
     Route: 048
     Dates: start: 20150327, end: 20150330
  12. LIPILOU [Concomitant]
     Indication: DYSLIPIDAEMIA
     Dosage: 20 MG, 1D
     Route: 048
     Dates: start: 20161102

REACTIONS (5)
  - Dyspnoea [Recovered/Resolved]
  - Peripheral arterial occlusive disease [Recovered/Resolved]
  - Skin ulcer [Unknown]
  - Cardiac arrest [Unknown]
  - Biopsy bone [Unknown]

NARRATIVE: CASE EVENT DATE: 20150412
